FAERS Safety Report 5203763-0 (Version None)
Quarter: 2007Q1

REPORT INFORMATION
  Report Type: 
  Country: None (occurrence: None)
  Receive Date: 20070109
  Receipt Date: 20070109
  Transmission Date: 20070707
  Serious: Yes (Other)
  Sender: FDA-Public Use
  Company Number: None

PATIENT
  Age: 68 Year
  Sex: Female
  Weight: 65.7716 kg

DRUGS (1)
  1. LOVASTATIN [Suspect]
     Indication: LOW DENSITY LIPOPROTEIN INCREASED
     Dosage: 20 MG 1 X NIGHT ...3 WKS
     Dates: start: 20061129, end: 20061218

REACTIONS (4)
  - ARTHRALGIA [None]
  - HYPOAESTHESIA [None]
  - POLLAKIURIA [None]
  - TREATMENT NONCOMPLIANCE [None]
